FAERS Safety Report 26191950 (Version 1)
Quarter: 2025Q4

REPORT INFORMATION
  Report Type: Report from Study
  Country: US (occurrence: US)
  Receive Date: 20251223
  Receipt Date: 20251223
  Transmission Date: 20260118
  Serious: Yes (Other)
  Sender: ABBVIE
  Company Number: US-ABBVIE-6603012

PATIENT
  Sex: Female

DRUGS (1)
  1. RESTASIS [Suspect]
     Active Substance: CYCLOSPORINE
     Indication: Product used for unknown indication
     Dosage: ROA: OPHTHALMIC, FORM STRENGTH: 0.5 MILLIGRAM/MILLILITERS
     Route: 065

REACTIONS (2)
  - Neoplasm malignant [Unknown]
  - Amnesia [Unknown]
